FAERS Safety Report 9293145 (Version 2)
Quarter: 2013Q2

REPORT INFORMATION
  Report Type: Spontaneous
  Country: US (occurrence: None)
  Receive Date: 20130514
  Receipt Date: 20130530
  Transmission Date: 20140414
  Serious: Yes (Hospitalization)
  Sender: FDA-Public Use
  Company Number: KAD201305-000519

PATIENT
  Age: 60 Year
  Sex: Male
  Weight: 104.3 kg

DRUGS (3)
  1. RIBASPHERE RIBAPAK (RIBAVIRIN) [Suspect]
     Indication: HEPATITIS C
     Dosage: 600 MG, TWICE DAILY (200/400 MG)?
     Dates: end: 20130506
  2. INCIVEK [Suspect]
     Indication: HEPATITIS C
     Dates: start: 20130321, end: 20130506
  3. PEGASYS (PEGINTERFERON ALFA-2A) [Suspect]
     Indication: HEPATITIS C
     Dates: start: 20130321, end: 20130506

REACTIONS (2)
  - Cerebrovascular accident [None]
  - Lacunar infarction [None]
